FAERS Safety Report 5731956-2 (Version None)
Quarter: 2008Q2

REPORT INFORMATION
  Report Type: 
  Country: None (occurrence: None)
  Receive Date: 20080508
  Receipt Date: 20080425
  Transmission Date: 20081010
  Serious: Yes (Other)
  Sender: FDA-Public Use
  Company Number: AU-TYCO HEALTHCARE/MALLINCKRODT-T200100003

PATIENT

DRUGS (1)
  1. OPTIMARK IN PLASTIC SYRINGES [Suspect]
     Dosage: 10 ML, SINGLE
     Route: 042
     Dates: start: 20011228, end: 20011228

REACTIONS (4)
  - BRONCHOSPASM [None]
  - LARYNGOSPASM [None]
  - MALAISE [None]
  - URTICARIA [None]
